FAERS Safety Report 4286706-6 (Version None)
Quarter: 2004Q1

REPORT INFORMATION
  Report Type: 
  Country: None (occurrence: None)
  Receive Date: 20040204
  Receipt Date: 20040122
  Transmission Date: 20041129
  Serious: Yes (Hospitalization, Other)
  Sender: FDA-Public Use
  Company Number: FRWYE514016JAN04

PATIENT
  Age: 33 Year
  Sex: Female

DRUGS (1)
  1. EFFEXOR [Suspect]
     Dosage: 200 MG 1X PER 1 DAY ORAL
     Route: 048
     Dates: start: 20021101, end: 20030618

REACTIONS (2)
  - STEVENS-JOHNSON SYNDROME [None]
  - TOXIC EPIDERMAL NECROLYSIS [None]
